FAERS Safety Report 13512146 (Version 1)
Quarter: 2017Q2

REPORT INFORMATION
  Report Type: Spontaneous
  Country: US (occurrence: US)
  Receive Date: 20170504
  Receipt Date: 20170504
  Transmission Date: 20170830
  Serious: No
  Sender: FDA-Public Use
  Company Number: PHEH2017US012897

PATIENT
  Sex: Female

DRUGS (1)
  1. MOXEZA [Suspect]
     Active Substance: MOXIFLOXACIN HYDROCHLORIDE
     Indication: PRODUCT USED FOR UNKNOWN INDICATION
     Route: 065

REACTIONS (12)
  - Concomitant disease aggravated [Unknown]
  - Obstructive airways disorder [Unknown]
  - Conjunctivitis [Unknown]
  - Ocular hyperaemia [Unknown]
  - Eyelid margin crusting [Unknown]
  - Dyspnoea [Unknown]
  - Visual impairment [Unknown]
  - Asthenia [Unknown]
  - Malaise [Unknown]
  - Pruritus [Unknown]
  - Eye pain [Unknown]
  - Dizziness [Unknown]
